FAERS Safety Report 6068298-4 (Version None)
Quarter: 2009Q1

REPORT INFORMATION
  Report Type: 
  Country: None (occurrence: None)
  Receive Date: 20090206
  Receipt Date: 20090203
  Transmission Date: 20090719
  Serious: Yes (Death, Other)
  Sender: FDA-Public Use
  Company Number: PHBS2009JP00676

PATIENT
  Age: 41 Year
  Sex: Female

DRUGS (13)
  1. CYCLOSPORINE [Suspect]
     Indication: STEM CELL TRANSPLANT
     Dosage: 3 MG/KG
  2. FLUDARABINE PHOSPHATE [Suspect]
     Dosage: 125 MG/M2
  3. CYCLOPHOSPHAMIDE [Suspect]
     Dosage: 30 MG/KG
  4. IRRADIATION [Concomitant]
  5. METHYLPREDNISOLONE 4MG TAB [Concomitant]
     Indication: GRAFT VERSUS HOST DISEASE
     Dosage: 2 MG/KG
  6. HEPARIN [Concomitant]
  7. GLYCYRRHIZIC ACID [Concomitant]
  8. CEFOZOPRAN [Concomitant]
  9. MEROPENEM [Concomitant]
  10. VANCOMYCIN [Concomitant]
  11. FUROSEMIDE [Concomitant]
  12. IMMUNOGLOBULINS [Concomitant]
     Route: 042
  13. ALBUMIN (HUMAN) [Concomitant]
     Route: 042

REACTIONS (5)
  - ACUTE GRAFT VERSUS HOST DISEASE [None]
  - ACUTE MYELOID LEUKAEMIA RECURRENT [None]
  - CONVULSION [None]
  - DEPRESSED LEVEL OF CONSCIOUSNESS [None]
  - PYREXIA [None]
